FAERS Safety Report 7800278-8 (Version None)
Quarter: 2011Q4

REPORT INFORMATION
  Report Type: 
  Country: None (occurrence: None)
  Receive Date: 20111006
  Receipt Date: 20110928
  Transmission Date: 20120403
  Serious: No
  Sender: FDA-Public Use
  Company Number: JP-GLAXOSMITHKLINE-B0735810A

PATIENT
  Sex: Female
  Weight: 31 kg

DRUGS (8)
  1. VALTREX [Suspect]
     Indication: HERPES ZOSTER
     Dosage: 3000MG PER DAY
     Route: 048
     Dates: start: 20110720, end: 20110725
  2. ADALAT [Concomitant]
     Route: 048
  3. LOXONIN [Concomitant]
     Indication: ANALGESIC THERAPY
     Route: 048
     Dates: start: 20110720
  4. ALENDRONATE SODIUM [Concomitant]
     Indication: OSTEOPOROSIS
     Route: 048
  5. SELBEX [Concomitant]
     Dosage: 2IUAX PER DAY
     Route: 048
     Dates: start: 20110720, end: 20110723
  6. PRAVASTATIN SODIUM [Concomitant]
     Indication: HYPERCHOLESTEROLAEMIA
     Dosage: 5MG PER DAY
     Route: 048
  7. NIVADIL [Concomitant]
     Indication: HYPERTENSION
     Dosage: 2MG PER DAY
     Route: 048
  8. UNKNOWN DRUG [Concomitant]
     Indication: OSTEOPOROSIS
     Dosage: 1MG PER DAY
     Route: 048

REACTIONS (3)
  - PLATELET COUNT DECREASED [None]
  - HAEMORRHAGE SUBCUTANEOUS [None]
  - PURPURA [None]
